FAERS Safety Report 6502346-X (Version None)
Quarter: 2009Q4

REPORT INFORMATION
  Report Type: 
  Country: None (occurrence: None)
  Receive Date: 20091216
  Receipt Date: 20091201
  Transmission Date: 20100525
  Serious: No
  Sender: FDA-Public Use
  Company Number: US-ABBOTT-09P-163-0611653-00

PATIENT
  Sex: Male
  Weight: 92.162 kg

DRUGS (4)
  1. TRILIPIX [Suspect]
     Indication: HYPERLIPIDAEMIA
     Dates: start: 20090626
  2. TRILIPIX [Suspect]
     Indication: BLOOD TRIGLYCERIDES INCREASED
  3. HYDROCHLOROTHIAZIDE [Concomitant]
     Indication: HYPERTENSION
     Dates: start: 20080401
  4. ATENOLOL [Concomitant]
     Indication: HYPERTENSION
     Dates: start: 20080401

REACTIONS (2)
  - COUGH [None]
  - PHARYNGEAL ERYTHEMA [None]
